FAERS Safety Report 6592852-4 (Version None)
Quarter: 2010Q1

REPORT INFORMATION
  Report Type: 
  Country: None (occurrence: None)
  Receive Date: 20100212
  Receipt Date: 20100129
  Transmission Date: 20100710
  Serious: Yes (Hospitalization, Other)
  Sender: FDA-Public Use
  Company Number: 2010SP000803

PATIENT
  Age: 52 Year
  Sex: Male

DRUGS (1)
  1. REMERON [Suspect]
     Indication: DRUG USE FOR UNKNOWN INDICATION
     Dosage: 45 MG;QD

REACTIONS (5)
  - EPILEPSY [None]
  - INSOMNIA [None]
  - MEMORY IMPAIRMENT [None]
  - SUICIDAL IDEATION [None]
  - WEIGHT INCREASED [None]
